FAERS Safety Report 14250715 (Version 1)
Quarter: 2017Q4

REPORT INFORMATION
  Report Type: Spontaneous
  Country: US (occurrence: US)
  Receive Date: 20171205
  Receipt Date: 20171205
  Transmission Date: 20180321
  Serious: No
  Sender: FDA-Public Use
  Company Number: US-PFIZER INC-2017514850

PATIENT
  Age: 1 Year
  Sex: Male

DRUGS (1)
  1. REVATIO [Suspect]
     Active Substance: SILDENAFIL CITRATE
     Dosage: 0.4 ML, 3X/DAY
     Route: 048

REACTIONS (6)
  - Respiratory rate increased [Unknown]
  - Hypersomnia [Unknown]
  - Gait disturbance [Unknown]
  - Drug administered to patient of inappropriate age [Unknown]
  - Fall [Unknown]
  - Dizziness [Unknown]
